FAERS Safety Report 6800740-0 (Version None)
Quarter: 2010Q2

REPORT INFORMATION
  Report Type: 
  Country: None (occurrence: None)
  Receive Date: 20100629
  Receipt Date: 20100617
  Transmission Date: 20101027
  Serious: Yes (Other)
  Sender: FDA-Public Use
  Company Number: US-JNJFOC-20100605946

PATIENT
  Sex: Female

DRUGS (3)
  1. DOXORUBICIN HCL [Suspect]
     Indication: OVARIAN CANCER
     Dosage: CYCLE 1
     Route: 042
  2. DOXORUBICIN HCL [Suspect]
     Dosage: CYCLE 2
     Route: 042
  3. AVASTIN [Suspect]
     Indication: OVARIAN CANCER
     Route: 065

REACTIONS (4)
  - ARTHRALGIA [None]
  - DISCOMFORT [None]
  - HYPERAESTHESIA [None]
  - RASH [None]
